FAERS Safety Report 18345539 (Version 1)
Quarter: 2020Q4

REPORT INFORMATION
  Report Type: Report from Study
  Country: ES (occurrence: ES)
  Receive Date: 20201005
  Receipt Date: 20201005
  Transmission Date: 20210114
  Serious: Yes (Hospitalization, Other)
  Sender: FDA-Public Use
  Company Number: ES-PFIZER INC-2020376491

PATIENT
  Age: 76 Year
  Sex: Male
  Weight: 48.9 kg

DRUGS (5)
  1. OXALIPLATIN. [Suspect]
     Active Substance: OXALIPLATIN
     Indication: COLORECTAL CANCER
     Dosage: 110 MG, 2X/WEEK (FREQ:2 WK, Q2WK)
     Route: 042
     Dates: start: 20200506, end: 20200729
  2. 5 FU [Suspect]
     Active Substance: FLUOROURACIL
     Indication: COLORECTAL CANCER
     Dosage: 520 MG, 2X/WEEK (FREQ: 2 WK;520 MILLIGRAM, Q2WK)
     Route: 040
     Dates: start: 20200506, end: 20200729
  3. 5 FU [Suspect]
     Active Substance: FLUOROURACIL
     Dosage: 3100 MG, 2X/WEEK (Q2WK)
     Route: 042
     Dates: start: 20200506, end: 20200729
  4. PANITUMUMAB [Suspect]
     Active Substance: PANITUMUMAB
     Indication: COLORECTAL CANCER
     Dosage: 270 MG, 2X/WEEK (FREQ:2 WK;270 MILLIGRAM, Q2WK)
     Route: 042
     Dates: start: 20200506, end: 20200729
  5. FOLINIC ACID [Concomitant]
     Active Substance: LEUCOVORIN
     Indication: COLORECTAL CANCER
     Dosage: 660 MG, 2X/WEEK (FREQ:2 WK, Q2WK)
     Route: 042
     Dates: start: 20200506, end: 20200729

REACTIONS (10)
  - Mucosal inflammation [Recovered/Resolved]
  - Hypokalaemia [Recovered/Resolved]
  - Candida infection [Recovered/Resolved]
  - Pneumonia [Recovered/Resolved]
  - Nausea [Recovered/Resolved]
  - Bacteriuria [Recovered/Resolved]
  - Diarrhoea [Recovered/Resolved]
  - Hyponatraemia [Recovered/Resolved]
  - Asthenia [Recovered/Resolved]
  - Neutropenia [Recovered/Resolved]

NARRATIVE: CASE EVENT DATE: 20200818
